FAERS Safety Report 7241579-4 (Version None)
Quarter: 2011Q1

REPORT INFORMATION
  Report Type: 
  Country: None (occurrence: None)
  Receive Date: 20110124
  Receipt Date: 20110118
  Transmission Date: 20110831
  Serious: Yes (Hospitalization)
  Sender: FDA-Public Use
  Company Number: SE-MERCK-1101SWE00016

PATIENT
  Age: 64 Year
  Sex: Male

DRUGS (14)
  1. FINASTERIDE [Concomitant]
     Route: 048
  2. FELODIPINE [Concomitant]
     Route: 065
  3. ALFUZOSIN HYDROCHLORIDE [Concomitant]
     Route: 001
  4. ASPIRIN [Concomitant]
     Route: 048
  5. SPIRONOLACTONE [Concomitant]
     Route: 048
  6. DIPYRIDAMOLE [Concomitant]
     Route: 048
  7. SIMVASTATIN [Suspect]
     Indication: HYPERLIPIDAEMIA
     Route: 048
     Dates: start: 20100301, end: 20100901
  8. TOLTERODINE TARTRATE [Concomitant]
     Route: 048
  9. HYDROCHLOROTHIAZIDE [Concomitant]
     Route: 048
  10. SIMVASTATIN [Suspect]
     Indication: HYPERTRIGLYCERIDAEMIA
     Route: 048
     Dates: start: 20100301, end: 20100901
  11. ENALAPRIL MALEATE [Concomitant]
     Route: 048
  12. ZETIA [Suspect]
     Indication: HYPERLIPIDAEMIA
     Route: 048
     Dates: start: 20100701, end: 20100901
  13. ZETIA [Suspect]
     Indication: HYPERTRIGLYCERIDAEMIA
     Route: 048
     Dates: start: 20100701, end: 20100901
  14. CITALOPRAM [Concomitant]
     Route: 048

REACTIONS (3)
  - MUSCULAR WEAKNESS [None]
  - DYSPNOEA [None]
  - SENSORY DISTURBANCE [None]
